FAERS Safety Report 11234693 (Version 1)
Quarter: 2015Q3

REPORT INFORMATION
  Report Type: Spontaneous
  Country: MA (occurrence: MA)
  Receive Date: 20150702
  Receipt Date: 20150702
  Transmission Date: 20151125
  Serious: Yes (Death, Other)
  Sender: FDA-Public Use
  Company Number: MA-PFIZER INC-2015217536

PATIENT
  Age: 17 Year
  Sex: Female

DRUGS (1)
  1. ARTOTEC [Suspect]
     Active Substance: DICLOFENAC SODIUM\MISOPROSTOL
     Dosage: 5 DF, SINGLE

REACTIONS (3)
  - Off label use [Fatal]
  - Foetal death [Unknown]
  - Death [Fatal]
